FAERS Safety Report 7190182-3 (Version None)
Quarter: 2010Q4

REPORT INFORMATION
  Report Type: 
  Country: None (occurrence: None)
  Receive Date: 20101223
  Receipt Date: 20101220
  Transmission Date: 20110411
  Serious: Yes (Life-Threatening, Other)
  Sender: FDA-Public Use
  Company Number: US-PERRIGO-10US013957

PATIENT
  Sex: Male
  Weight: 101.13 kg

DRUGS (9)
  1. IBUPROFEN [Suspect]
     Indication: BACK DISORDER
     Dosage: 400 MG, SINGLE
     Route: 048
     Dates: start: 20101013, end: 20101013
  2. IBUPROFEN [Suspect]
     Indication: BACK PAIN
  3. IBUPROFEN [Concomitant]
     Indication: BACK PAIN
     Dosage: 200 MG, UNK
     Route: 048
  4. ACETAMINOPHEN [Concomitant]
     Indication: BACK PAIN
     Dosage: 500 MG, UNK
     Route: 048
  5. AMITRIPTYLINE HCL [Concomitant]
     Indication: PRODUCT USED FOR UNKNOWN INDICATION
     Dosage: 10 MG AT BEDTIME
     Route: 048
  6. ZYRTEC [Concomitant]
     Indication: HYPERSENSITIVITY
     Dosage: 10 MG AT BEDTIME
     Route: 048
  7. SUBOXONE [Concomitant]
     Indication: PRODUCT USED FOR UNKNOWN INDICATION
     Dosage: 2 TABLETS AS DIRECTED
     Route: 060
  8. NABUMETONE [Concomitant]
     Indication: PRODUCT USED FOR UNKNOWN INDICATION
     Dosage: 750 MG, QD IN THE MORNING
     Route: 048
  9. PERMETHRIN [Concomitant]
     Indication: PRODUCT USED FOR UNKNOWN INDICATION
     Dosage: 5 %, UNKNOWN
     Route: 061

REACTIONS (9)
  - DYSPHAGIA [None]
  - ERYTHEMA [None]
  - EYE SWELLING [None]
  - FEELING HOT [None]
  - HYPERSENSITIVITY [None]
  - PHARYNGEAL OEDEMA [None]
  - RASH MACULAR [None]
  - SWELLING FACE [None]
  - TACHYCARDIA [None]
